FAERS Safety Report 17704908 (Version 1)
Quarter: 2020Q2

REPORT INFORMATION
  Report Type: Report from Study
  Country: US (occurrence: US)
  Receive Date: 20200424
  Receipt Date: 20200424
  Transmission Date: 20200714
  Serious: No
  Sender: FDA-Public Use
  Company Number: US-SUNOVION-2020SUN001188

PATIENT
  Sex: Female

DRUGS (10)
  1. TEMAZEPAM. [Concomitant]
     Active Substance: TEMAZEPAM
     Dosage: 15 MG (1 CAPSULE), HS
     Route: 048
     Dates: start: 20200323
  2. LONHALA MAGNAIR [Suspect]
     Active Substance: GLYCOPYRROLATE
     Dosage: 25 ?G/1 ML, BID
     Route: 055
     Dates: start: 20200407
  3. GUAIFENESIN AC [Concomitant]
     Active Substance: CODEINE PHOSPHATE\GUAIFENESIN
     Dosage: 10 ML, Q4H (100 MG/5 ML)
     Route: 048
     Dates: start: 20200406
  4. LEVOTHYROXINE. [Concomitant]
     Active Substance: LEVOTHYROXINE
     Dosage: 50 ?G (1 TABLET), QD
     Route: 048
     Dates: start: 20191009
  5. MONTELUKAST [Concomitant]
     Active Substance: MONTELUKAST SODIUM
     Dosage: 10 MG (1 TABLET), QD
     Route: 048
     Dates: start: 20200406
  6. VITAMIN B12 [Concomitant]
     Active Substance: CYANOCOBALAMIN
     Dosage: 1000 ?G/1 ML, Q4WEEKS (EVERY MONTH)
     Route: 030
     Dates: start: 20191108
  7. MAGNESIUM OXIDE. [Concomitant]
     Active Substance: MAGNESIUM OXIDE
     Dosage: 400 MG, HS
     Route: 048
     Dates: start: 20200226
  8. ASPIRIN. [Concomitant]
     Active Substance: ASPIRIN
     Dosage: 81 MG (1 TABLET), QD
     Route: 048
     Dates: start: 20180716
  9. ATORVASTATIN [Concomitant]
     Active Substance: ATORVASTATIN
     Dosage: 40 MG (1 TABLET), HS
     Route: 048
     Dates: start: 20191204
  10. SYMBICORT [Concomitant]
     Active Substance: BUDESONIDE\FORMOTEROL FUMARATE DIHYDRATE
     Dosage: 160 ?G-4.5 ?G, 2 PUFFS BID
     Route: 055
     Dates: start: 20200306

REACTIONS (1)
  - Cough [Unknown]
